FAERS Safety Report 12179352 (Version 1)
Quarter: 2016Q1

REPORT INFORMATION
  Report Type: Spontaneous
  Country: US (occurrence: US)
  Receive Date: 20160315
  Receipt Date: 20160315
  Transmission Date: 20160526
  Serious: Yes (Other)
  Sender: FDA-Public Use
  Company Number: US-BAYER-2016-048300

PATIENT
  Age: 38 Year
  Sex: Female

DRUGS (1)
  1. GADAVIST [Suspect]
     Active Substance: GADOBUTROL
     Indication: NUCLEAR MAGNETIC RESONANCE IMAGING
     Dosage: 60 ML, ONCE
     Route: 042
     Dates: start: 20160304, end: 20160304

REACTIONS (2)
  - Feeling hot [None]
  - Rash [None]

NARRATIVE: CASE EVENT DATE: 20160304
